FAERS Safety Report 9745726 (Version 1)
Quarter: 2013Q4

REPORT INFORMATION
  Report Type: Not Available
  Country: GB (occurrence: GB)
  Receive Date: 20131211
  Receipt Date: 20131211
  Transmission Date: 20140711
  Serious: Yes (Other)
  Sender: FDA-Public Use
  Company Number: GB-ASTELLAS-2013EU010843

PATIENT
  Age: 70 Year
  Sex: Male
  Weight: 98 kg

DRUGS (10)
  1. TAMSULOSIN [Suspect]
     Dosage: UNK
     Route: 065
     Dates: start: 20130726, end: 20131018
  2. MIRABEGRON [Suspect]
     Dosage: UNK
     Route: 065
  3. ALLOPURINOL [Concomitant]
     Dosage: UNK
     Route: 065
     Dates: start: 20130726, end: 20131018
  4. CANDESARTAN [Concomitant]
     Dosage: UNK
     Route: 065
     Dates: start: 20130726, end: 20131018
  5. DOXAZOSIN [Concomitant]
     Dosage: UNK
     Route: 065
     Dates: start: 20130726, end: 20131018
  6. HYDROSIL [Concomitant]
     Dosage: UNK
     Route: 065
     Dates: start: 20130808, end: 20130905
  7. HYPROMELLOSE [Concomitant]
     Dosage: UNK
     Route: 065
     Dates: start: 20130726, end: 20131018
  8. LANSOPRAZOLE [Concomitant]
     Dosage: UNK
     Route: 065
     Dates: start: 20130726, end: 20131018
  9. MOXONIDINE [Concomitant]
     Dosage: UNK
     Route: 065
     Dates: start: 20130726, end: 20131018
  10. SIMVASTATIN [Concomitant]
     Dosage: UNK
     Route: 065
     Dates: start: 20130726, end: 20131018

REACTIONS (1)
  - Chest pain [Recovered/Resolved]
